FAERS Safety Report 6695749-4 (Version None)
Quarter: 2010Q2

REPORT INFORMATION
  Report Type: 
  Country: None (occurrence: None)
  Receive Date: 20100426
  Receipt Date: 20100414
  Transmission Date: 20101027
  Serious: Yes (Disabling, Other)
  Sender: FDA-Public Use
  Company Number: US-BAYER-201020133NA

PATIENT
  Sex: Male

DRUGS (3)
  1. YASMIN [Suspect]
     Indication: DRUG USE FOR UNKNOWN INDICATION
     Route: 064
     Dates: start: 20070201, end: 20070101
  2. YAZ [Suspect]
     Indication: DRUG USE FOR UNKNOWN INDICATION
     Route: 064
     Dates: start: 20070101, end: 20071109
  3. COMPLETE BLOOD TRANSFUSION [Concomitant]
     Route: 064

REACTIONS (3)
  - BRAIN INJURY [None]
  - CEREBRAL PALSY [None]
  - NERVOUS SYSTEM DISORDER [None]
